FAERS Safety Report 16643822 (Version 1)
Quarter: 2019Q3

REPORT INFORMATION
  Report Type: Spontaneous
  Country: US (occurrence: US)
  Receive Date: 20190729
  Receipt Date: 20190729
  Transmission Date: 20191004
  Serious: No
  Sender: FDA-Public Use
  Company Number: US-JNJFOC-20190723303

PATIENT
  Age: 32 Year
  Sex: Male

DRUGS (1)
  1. RISPERDAL [Suspect]
     Active Substance: RISPERIDONE
     Indication: TACHYPHRENIA
     Route: 048
     Dates: start: 19980205

REACTIONS (7)
  - Weight increased [Unknown]
  - Erectile dysfunction [Unknown]
  - Product use in unapproved indication [Unknown]
  - Gynaecomastia [Unknown]
  - Off label use [Unknown]
  - Galactorrhoea [Unknown]
  - Urinary incontinence [Unknown]

NARRATIVE: CASE EVENT DATE: 19980205
